APPROVED DRUG PRODUCT: ZINC SULFATE
Active Ingredient: ZINC SULFATE
Strength: EQ 30MG BASE/10ML (EQ 3MG BASE/ML)
Dosage Form/Route: SOLUTION;INTRAVENOUS
Application: A216135 | Product #002 | TE Code: AP
Applicant: SOMERSET THERAPEUTICS LLC
Approved: Jul 17, 2024 | RLD: No | RS: No | Type: RX